FAERS Safety Report 8735077 (Version 2)
Quarter: 2013Q4

REPORT INFORMATION
  Report Type: Report from Study
  Country: US (occurrence: US)
  Receive Date: 20120821
  Receipt Date: 20131108
  Transmission Date: 20140711
  Serious: Yes (Hospitalization)
  Sender: FDA-Public Use
  Company Number: US-009507513-1208USA007363

PATIENT
  Sex: Male

DRUGS (3)
  1. REBETOL [Suspect]
     Indication: CHRONIC HEPATITIS C
     Dosage: 1200 MG, UNK
     Route: 048
     Dates: start: 20111005
  2. VICTRELIS [Suspect]
     Indication: CHRONIC HEPATITIS C
     Dosage: UNK, TID
     Route: 048
     Dates: start: 20111102
  3. PEGINTERFERON ALFA-2A [Suspect]
     Indication: CHRONIC HEPATITIS C
     Dosage: 1 MICROGRAM, QW
     Dates: start: 20111005

REACTIONS (2)
  - Confusional state [Unknown]
  - Stress [Unknown]
